FAERS Safety Report 4316919-6 (Version None)
Quarter: 2004Q1

REPORT INFORMATION
  Report Type: 
  Country: None (occurrence: None)
  Receive Date: 20040308
  Receipt Date: 20031211
  Transmission Date: 20041129
  Serious: No
  Sender: FDA-Public Use
  Company Number: ALMO2003032

PATIENT
  Sex: Female

DRUGS (2)
  1. ALMOGRAN [Suspect]
     Indication: MIGRAINE
     Dosage: 12.5 MG DAILY PO
     Route: 048
  2. ASPEGIC 325 [Concomitant]

REACTIONS (1)
  - PERIPHERAL ISCHAEMIA [None]
